FAERS Safety Report 11729439 (Version 1)
Quarter: 2015Q4

REPORT INFORMATION
  Report Type: Spontaneous
  Country: US (occurrence: US)
  Receive Date: 20151112
  Receipt Date: 20151112
  Transmission Date: 20160304
  Serious: No
  Sender: FDA-Public Use
  Company Number: US-PERRIGO-14US009746

PATIENT
  Age: 55 Year
  Sex: Female
  Weight: 90.25 kg

DRUGS (1)
  1. NICOTINE POLACRILEX [Suspect]
     Active Substance: NICOTINE
     Indication: SMOKING CESSATION THERAPY
     Dosage: 4 MG, EVERY 1 TO 2 HOURS
     Route: 002
     Dates: start: 20140918, end: 20140928

REACTIONS (3)
  - Tooth fracture [Not Recovered/Not Resolved]
  - Incorrect drug administration duration [Recovered/Resolved]
  - Tooth discolouration [Not Recovered/Not Resolved]

NARRATIVE: CASE EVENT DATE: 20140918
